FAERS Safety Report 16018935 (Version 1)
Quarter: 2019Q1

REPORT INFORMATION
  Report Type: Spontaneous
  Country: FR (occurrence: FR)
  Receive Date: 20190228
  Receipt Date: 20190228
  Transmission Date: 20190418
  Serious: Yes (Other)
  Sender: FDA-Public Use
  Company Number: FR-MYLANLABS-2019M1018328

PATIENT
  Age: 56 Year
  Sex: Male

DRUGS (5)
  1. FLUINDIONE [Interacting]
     Active Substance: FLUINDIONE
     Indication: PULMONARY EMBOLISM
     Dosage: ALTERNATE DOSE OF 20MG ON ONE DAY AND 35MG ON THE NEXT DAY
     Route: 065
  2. GLIMEPIRIDE. [Concomitant]
     Active Substance: GLIMEPIRIDE
     Indication: TYPE 2 DIABETES MELLITUS
     Route: 065
  3. METFORMIN [Concomitant]
     Active Substance: METFORMIN HYDROCHLORIDE
     Indication: TYPE 2 DIABETES MELLITUS
     Route: 065
  4. QUININE [Concomitant]
     Active Substance: QUININE
     Indication: PLASMODIUM FALCIPARUM INFECTION
     Route: 042
  5. ATOVAQUONE/PROGUANIL/PROGUANIL HYDROCHLORIDE [Suspect]
     Active Substance: ATOVAQUONE\PROGUANIL HYDROCHLORIDE
     Indication: PLASMODIUM FALCIPARUM INFECTION
     Dosage: UNK
     Route: 065

REACTIONS (4)
  - Therapy cessation [None]
  - Prothrombin level decreased [Unknown]
  - Drug interaction [Unknown]
  - International normalised ratio increased [Recovered/Resolved]
